FAERS Safety Report 21934658 (Version 2)
Quarter: 2023Q1

REPORT INFORMATION
  Report Type: Report from Study
  Country: CL (occurrence: CL)
  Receive Date: 20230201
  Receipt Date: 20230325
  Transmission Date: 20230418
  Serious: No
  Sender: FDA-Public Use
  Company Number: CL-002147023-NVSC2023CL019483

PATIENT
  Age: 57 Year
  Sex: Female

DRUGS (1)
  1. HYRIMOZ [Suspect]
     Active Substance: ADALIMUMAB-ADAZ
     Indication: Sacroiliitis
     Dosage: 40 MG, BIW
     Route: 058
     Dates: start: 20230105

REACTIONS (4)
  - Cough [Unknown]
  - Back pain [Unknown]
  - Throat irritation [Unknown]
  - Product use in unapproved indication [Unknown]

NARRATIVE: CASE EVENT DATE: 20230105
